FAERS Safety Report 13697228 (Version 1)
Quarter: 2017Q2

REPORT INFORMATION
  Report Type: Spontaneous
  Country: US (occurrence: US)
  Receive Date: 20170628
  Receipt Date: 20170628
  Transmission Date: 20170830
  Serious: No
  Sender: FDA-Public Use
  Company Number: US-LUNDBECK-DKLU2032575

PATIENT
  Sex: Female

DRUGS (6)
  1. NORTHERA [Suspect]
     Active Substance: DROXIDOPA
     Dosage: SCHEDULE B, TITRATING
     Dates: start: 20170520
  2. NORTHERA [Suspect]
     Active Substance: DROXIDOPA
  3. NORTHERA [Suspect]
     Active Substance: DROXIDOPA
     Indication: PRODUCT USED FOR UNKNOWN INDICATION
  4. NORTHERA [Suspect]
     Active Substance: DROXIDOPA
  5. NORTHERA [Suspect]
     Active Substance: DROXIDOPA
  6. NORTHERA [Suspect]
     Active Substance: DROXIDOPA
     Dosage: IN AM

REACTIONS (2)
  - Blood pressure decreased [Unknown]
  - Nausea [Unknown]
